FAERS Safety Report 19958564 (Version 1)
Quarter: 2021Q4

REPORT INFORMATION
  Report Type: Spontaneous
  Country: US (occurrence: US)
  Receive Date: 20211015
  Receipt Date: 20211015
  Transmission Date: 20220303
  Serious: Yes (Hospitalization)
  Sender: FDA-Public Use
  Company Number: US-PFIZER INC-202101200767

PATIENT
  Age: 54 Year
  Sex: Male
  Weight: 68.03 kg

DRUGS (1)
  1. CHANTIX [Suspect]
     Active Substance: VARENICLINE TARTRATE
     Indication: Smoking cessation therapy
     Dosage: UNK UNK, 1X/DAY
     Dates: start: 202107

REACTIONS (2)
  - Nightmare [Recovered/Resolved]
  - Nausea [Recovered/Resolved]
